FAERS Safety Report 23034341 (Version 9)
Quarter: 2025Q2

REPORT INFORMATION
  Report Type: Report from Study
  Country: US (occurrence: US)
  Receive Date: 20231005
  Receipt Date: 20250403
  Transmission Date: 20250717
  Serious: Yes (Other)
  Sender: TAKEDA
  Company Number: US-TAKEDA-2023TUS085060

PATIENT
  Sex: Male
  Weight: 89 kg

DRUGS (41)
  1. TEDUGLUTIDE [Suspect]
     Active Substance: TEDUGLUTIDE
     Indication: Short-bowel syndrome
     Dosage: 0.441 MILLILITER, QD
  2. TEDUGLUTIDE [Suspect]
     Active Substance: TEDUGLUTIDE
     Dosage: 4.41 MILLIGRAM, QD
  3. TEDUGLUTIDE [Suspect]
     Active Substance: TEDUGLUTIDE
     Dosage: 4.41 MILLIGRAM, QD
  4. TEDUGLUTIDE [Suspect]
     Active Substance: TEDUGLUTIDE
     Dosage: 4.41 MILLIGRAM, QD
  5. TEDUGLUTIDE [Suspect]
     Active Substance: TEDUGLUTIDE
     Dosage: 4.41 MILLIGRAM, QD
  6. TEDUGLUTIDE [Suspect]
     Active Substance: TEDUGLUTIDE
     Dosage: 4.41 MILLIGRAM, QD
  7. TEDUGLUTIDE [Suspect]
     Active Substance: TEDUGLUTIDE
     Dosage: 4.41 MILLIGRAM, QD
  8. TEDUGLUTIDE [Suspect]
     Active Substance: TEDUGLUTIDE
     Dosage: 4.41 MILLIGRAM, QD
  9. HYDROXYCHLOROQUINE SULFATE [Concomitant]
     Active Substance: HYDROXYCHLOROQUINE SULFATE
  10. SIMVASTATIN [Concomitant]
     Active Substance: SIMVASTATIN
  11. TOPICORT [Concomitant]
     Active Substance: DESOXIMETASONE
  12. VASCEPA [Concomitant]
     Active Substance: ICOSAPENT ETHYL
  13. PANTOPRAZOLE SODIUM [Concomitant]
     Active Substance: PANTOPRAZOLE SODIUM
  14. SILDENAFIL CITRATE [Concomitant]
     Active Substance: SILDENAFIL CITRATE
  15. MAGNESIUM OXIDE [Concomitant]
     Active Substance: MAGNESIUM OXIDE
  16. Dialyvite vitamin d3 max [Concomitant]
  17. ALCOHOL PREP PADS [Concomitant]
     Active Substance: ISOPROPYL ALCOHOL
  18. OXYCODONE AND ACETAMINOPHEN [Concomitant]
     Active Substance: ACETAMINOPHEN\OXYCODONE HYDROCHLORIDE
  19. ATORVASTATIN CALCIUM [Concomitant]
     Active Substance: ATORVASTATIN CALCIUM
  20. METHOCARBAMOL [Concomitant]
     Active Substance: METHOCARBAMOL
  21. BUDESONIDE [Concomitant]
     Active Substance: BUDESONIDE
  22. ESCITALOPRAM OXALATE [Concomitant]
     Active Substance: ESCITALOPRAM OXALATE
  23. FAMOTIDINE [Concomitant]
     Active Substance: FAMOTIDINE
  24. STELARA [Concomitant]
     Active Substance: USTEKINUMAB
  25. LANTUS SOLOSTAR [Concomitant]
     Active Substance: INSULIN GLARGINE
  26. INSULIN NOS [Concomitant]
     Active Substance: INSULIN NOS
  27. PREGABALIN [Concomitant]
     Active Substance: PREGABALIN
  28. ACETAMINOPHEN\HYDROCODONE [Concomitant]
     Active Substance: ACETAMINOPHEN\HYDROCODONE
  29. TRAZODONE HCL [Concomitant]
     Active Substance: TRAZODONE HYDROCHLORIDE
  30. CALCIPOTRIENE [Concomitant]
     Active Substance: CALCIPOTRIENE
  31. JANTOVEN [Concomitant]
     Active Substance: WARFARIN SODIUM
  32. JANTOVEN [Concomitant]
     Active Substance: WARFARIN SODIUM
  33. MIRTAZAPINE [Concomitant]
     Active Substance: MIRTAZAPINE
  34. MEGESTROL ACETATE [Concomitant]
     Active Substance: MEGESTROL ACETATE
  35. METOPROLOL TARTRATE [Concomitant]
     Active Substance: METOPROLOL TARTRATE
  36. GLIMEPIRIDE [Concomitant]
     Active Substance: GLIMEPIRIDE
  37. OMEPRAZOLE [Concomitant]
     Active Substance: OMEPRAZOLE
  38. LOPERAMIDE [Concomitant]
     Active Substance: LOPERAMIDE
  39. ATORVASTATIN [Concomitant]
     Active Substance: ATORVASTATIN
  40. ESTROGENS\METHYLTESTOSTERONE [Concomitant]
     Active Substance: ESTROGENS\METHYLTESTOSTERONE
  41. MAGNESIUM OXIDE [Concomitant]
     Active Substance: MAGNESIUM OXIDE

REACTIONS (6)
  - Diabetes mellitus [Unknown]
  - Neoplasm malignant [Unknown]
  - Gastrointestinal stoma output decreased [Unknown]
  - Diarrhoea [Unknown]
  - Incorrect dose administered [Unknown]
  - Decreased appetite [Unknown]
